FAERS Safety Report 17657673 (Version 1)
Quarter: 2020Q2

REPORT INFORMATION
  Report Type: Spontaneous
  Country: DE (occurrence: DE)
  Receive Date: 20200411
  Receipt Date: 20200411
  Transmission Date: 20200713
  Serious: Yes (Death, Hospitalization, Other)
  Sender: FDA-Public Use
  Company Number: DE-SHILPA MEDICARE LIMITED-SML-DE-2020-00130

PATIENT
  Age: 73 Year
  Sex: Female

DRUGS (8)
  1. DASATINIB. [Suspect]
     Active Substance: DASATINIB
     Indication: CHRONIC MYELOID LEUKAEMIA
     Dosage: 100 MG, UNK
     Route: 065
     Dates: start: 20161018, end: 20161116
  2. IMATINIB, UNKNOWN [Suspect]
     Active Substance: IMATINIB
     Indication: CHRONIC MYELOID LEUKAEMIA
     Dosage: 400 MILLIGRAM, 7 DAYS PER WEEK
     Route: 065
     Dates: start: 20170823, end: 20171214
  3. IMATINIB, UNKNOWN [Suspect]
     Active Substance: IMATINIB
     Dosage: 400 MILLIGRAM, 7 DAYS PER WEEK
     Route: 065
     Dates: start: 20181201, end: 20190304
  4. HYDROXYUREA. [Suspect]
     Active Substance: HYDROXYUREA
     Dosage: 1000 MG, TOTAL DAILY DOSE, 5 DAYS PER WEEK
     Route: 065
     Dates: start: 20180208, end: 20190304
  5. IMATINIB, UNKNOWN [Suspect]
     Active Substance: IMATINIB
     Dosage: 400 MILLIGRAM, 7 DAYS PER WEEK
     Route: 065
     Dates: start: 20181201, end: 20190304
  6. HYDROXYUREA. [Suspect]
     Active Substance: HYDROXYUREA
     Indication: CHRONIC MYELOID LEUKAEMIA
     Dosage: 500 MG, TOTAL DAILY DOSE
     Route: 065
     Dates: start: 20161010
  7. IMATINIB, UNKNOWN [Suspect]
     Active Substance: IMATINIB
     Indication: CHRONIC MYELOID LEUKAEMIA
     Dosage: 400 MILLIGRAM, 7 DAYS PER WEEK
     Route: 065
     Dates: start: 20170823, end: 20171214
  8. HYDROXYUREA. [Suspect]
     Active Substance: HYDROXYUREA
     Dosage: 500 MG, TOTAL DAILY DOSE, 7 DAYS PER WEEK
     Route: 065
     Dates: start: 20171215, end: 20180207

REACTIONS (12)
  - Hepatosplenomegaly [Not Recovered/Not Resolved]
  - Inappropriate antidiuretic hormone secretion [Recovered/Resolved]
  - Drug ineffective [Unknown]
  - Foot fracture [Recovered/Resolved]
  - Dehydration [Recovered/Resolved]
  - Oedema peripheral [Not Recovered/Not Resolved]
  - Vomiting [Recovered/Resolved]
  - Cardiac failure [Recovered/Resolved]
  - Malignant neoplasm progression [Unknown]
  - Pleural effusion [Recovered/Resolved]
  - Death [Fatal]
  - Bronchitis [Recovered/Resolved]

NARRATIVE: CASE EVENT DATE: 20161023
